FAERS Safety Report 8502061-7 (Version None)
Quarter: 2012Q3

REPORT INFORMATION
  Report Type: 
  Country: None (occurrence: None)
  Receive Date: 20120711
  Receipt Date: 20120621
  Transmission Date: 20120928
  Serious: No
  Sender: FDA-Public Use
  Company Number: CA-JNJFOC-20120611951

PATIENT
  Sex: Female
  Weight: 66 kg

DRUGS (5)
  1. IMURAN [Concomitant]
     Route: 065
  2. ESCITALOPRAM [Concomitant]
  3. REMICADE [Suspect]
     Indication: CROHN'S DISEASE
     Route: 042
     Dates: start: 20100609
  4. ALL OTHER THERAPEUTIC PRODUCTS [Concomitant]
     Route: 065
  5. SEROQUEL [Concomitant]
     Route: 065

REACTIONS (5)
  - GASTROENTERITIS [None]
  - INFLUENZA [None]
  - NAUSEA [None]
  - DIARRHOEA [None]
  - VOMITING [None]
